FAERS Safety Report 19999497 (Version 1)
Quarter: 2021Q4

REPORT INFORMATION
  Report Type: Spontaneous
  Country: SI (occurrence: SI)
  Receive Date: 20211026
  Receipt Date: 20211026
  Transmission Date: 20220304
  Serious: Yes (Other)
  Sender: FDA-Public Use
  Company Number: SI-NOVARTISPH-NVSC2021SI239264

PATIENT
  Age: 88 Year
  Sex: Female

DRUGS (8)
  1. BEOVU [Suspect]
     Active Substance: BROLUCIZUMAB-DBLL
     Indication: Product used for unknown indication
     Dosage: 1 DF, ONCE/SINGLE
     Route: 031
     Dates: start: 20210407, end: 20210407
  2. BEOVU [Suspect]
     Active Substance: BROLUCIZUMAB-DBLL
     Dosage: 1 DF, ONCE/SINGLE
     Route: 031
     Dates: start: 20210504, end: 20210504
  3. BEOVU [Suspect]
     Active Substance: BROLUCIZUMAB-DBLL
     Dosage: 1 DF, ONCE/SINGLE
     Route: 031
     Dates: start: 20210614, end: 20210614
  4. EYLEA [Suspect]
     Active Substance: AFLIBERCEPT
     Indication: Product used for unknown indication
     Dosage: 4 DF (TOTAL NUMBER OF INJECTIONS: 4)
     Route: 031
     Dates: start: 2018
  5. EYLEA [Suspect]
     Active Substance: AFLIBERCEPT
     Dosage: 2 DF (TOTAL NUMBER OF INJECTIONS: 2)
     Route: 065
     Dates: start: 2019, end: 2019
  6. EYLEA [Suspect]
     Active Substance: AFLIBERCEPT
     Dosage: 5 DF (TOTAL NUMBER OF INJECTIONS: 5)
     Route: 065
     Dates: start: 2020, end: 2020
  7. EYLEA [Suspect]
     Active Substance: AFLIBERCEPT
     Dosage: 1 DF, ONCE/SINGLE
     Route: 031
     Dates: start: 20210706, end: 20210706
  8. EYLEA [Suspect]
     Active Substance: AFLIBERCEPT
     Dosage: 1 DF, ONCE/SINGLE
     Route: 031
     Dates: start: 20210824

REACTIONS (6)
  - Retinal vasculitis [Recovered/Resolved]
  - Retinal oedema [Recovered/Resolved]
  - Eye inflammation [Recovered/Resolved]
  - Dyschromatopsia [Recovered/Resolved]
  - Vitreous disorder [Recovered/Resolved]
  - Visual field defect [Recovered/Resolved]

NARRATIVE: CASE EVENT DATE: 20210511
